FAERS Safety Report 23455789 (Version 1)
Quarter: 2024Q1

REPORT INFORMATION
  Report Type: Spontaneous
  Country: NL (occurrence: NL)
  Receive Date: 20240130
  Receipt Date: 20240130
  Transmission Date: 20240409
  Serious: Yes (Hospitalization, Other)
  Sender: FDA-Public Use
  Company Number: NL-BAXTER-2024BAX010254

PATIENT
  Age: 68 Year
  Sex: Male
  Weight: 75 kg

DRUGS (16)
  1. DOXORUBICIN [Suspect]
     Active Substance: DOXORUBICIN
     Indication: Diffuse large B-cell lymphoma
     Dosage: 100 MILLIGRAM (100 MG, EVERY 3 WEEKS)
     Route: 042
     Dates: start: 20230929
  2. PREDNISONE [Suspect]
     Active Substance: PREDNISONE
     Indication: Diffuse large B-cell lymphoma
     Dosage: 100 MILLIGRAM, ONCE A DAY (100 MG C1-6, DAY 1-5, EVERY 1 DAYS)
     Route: 048
     Dates: start: 20230929
  3. CYCLOPHOSPHAMIDE [Suspect]
     Active Substance: CYCLOPHOSPHAMIDE
     Indication: Diffuse large B-cell lymphoma
     Dosage: 1500 MILLIGRAM (1500 MG, EVERY 3 WEEKS)
     Route: 042
     Dates: start: 20230929
  4. EPCORITAMAB [Suspect]
     Active Substance: EPCORITAMAB
     Indication: Diffuse large B-cell lymphoma
     Dosage: 48 MILLIGRAM (48 MG C1 (STEP- UP), CYCLE 2-4 (21-DAY CYCLE, WEEKLY DOSE), C5-8 (21-DAY CYCLE,EVERY 3
     Route: 058
     Dates: start: 20230929
  5. VINCRISTINE [Suspect]
     Active Substance: VINCRISTINE
     Indication: Diffuse large B-cell lymphoma
     Dosage: 1 MILLIGRAM (1 MG, EVERY 3 WEEKS)
     Route: 042
     Dates: start: 20230929, end: 20231110
  6. RITUXIMAB [Suspect]
     Active Substance: RITUXIMAB
     Indication: Diffuse large B-cell lymphoma
     Dosage: 750 MILLIGRAM (750 MG, EVERY 3 WEEKS)
     Route: 042
     Dates: start: 20230929, end: 20231201
  7. VALACYCLOVIR HYDROCHLORIDE [Concomitant]
     Active Substance: VALACYCLOVIR HYDROCHLORIDE
     Indication: Antiviral prophylaxis
     Dosage: 500 MILLIGRAM (500 MG, 2/DAYS)
     Route: 065
     Dates: start: 20230929
  8. ACETAMINOPHEN [Concomitant]
     Active Substance: ACETAMINOPHEN
     Indication: Prophylaxis
     Dosage: 1000 MILLIGRAM (1000 MG INTERMITTENT)
     Route: 065
     Dates: start: 20230929
  9. PANTOPRAZOLE SODIUM [Concomitant]
     Active Substance: PANTOPRAZOLE SODIUM
     Indication: Gastrointestinal disorder prophylaxis
     Dosage: 20 MILLIGRAM, ONCE A DAY (20 MG, EVERY 2 DAYS)
     Route: 065
     Dates: start: 20230929
  10. MOVICOLON [Concomitant]
     Active Substance: POLYETHYLENE GLYCOL 3350\POTASSIUM CHLORIDE\SODIUM BICARBONATE\SODIUM CHLORIDE
     Indication: Constipation prophylaxis
     Dosage: 13.9 MILLIGRAM, ONCE A DAY (13.9 MG, EVERY 2 DAYS)
     Route: 065
     Dates: start: 20230929
  11. ALBUTEROL [Concomitant]
     Active Substance: ALBUTEROL
     Indication: Asthma
     Dosage: 100 MICROGRAM, AS NECESSARY (100 UG, AS NECESSARY)
     Route: 065
     Dates: start: 20230404
  12. CLEMASTINE [Concomitant]
     Active Substance: CLEMASTINE
     Indication: Allergy prophylaxis
     Dosage: 2 MILLIGRAM (2 MG, INTERMITTENT)
     Route: 065
     Dates: start: 20230929
  13. PEGFILGRASTIM [Concomitant]
     Active Substance: PEGFILGRASTIM
     Indication: Prophylaxis
     Dosage: 6 MILLIGRAM (6 MG, EVERY 3 WEEKS)
     Route: 065
     Dates: start: 20231021
  14. AUGMENTIN [Concomitant]
     Active Substance: AMOXICILLIN\CLAVULANATE POTASSIUM
     Indication: Influenza like illness
     Dosage: 625 MILLIGRAM (625 MG, 3/DAYS)
     Route: 065
     Dates: start: 20231221
  15. SULFAMETHOXAZOLE\TRIMETHOPRIM [Concomitant]
     Active Substance: SULFAMETHOXAZOLE\TRIMETHOPRIM
     Indication: Antifungal prophylaxis
     Dosage: 480 MILLIGRAM, ONCE A DAY (480 MG, EVERY 2 DAYS)
     Route: 065
     Dates: start: 20230929, end: 20240103
  16. ALBUTEROL\IPRATROPIUM [Concomitant]
     Active Substance: ALBUTEROL\IPRATROPIUM
     Indication: Asthma
     Dosage: 4 DOSAGE FORM, AS NECESSARY (4 INHALATION, AS NECESSARY)
     Route: 065
     Dates: start: 20231228

REACTIONS (12)
  - Sputum discoloured [Unknown]
  - Pyrexia [Recovering/Resolving]
  - Decreased appetite [Unknown]
  - Cough [Unknown]
  - Pneumonia [Not Recovered/Not Resolved]
  - Dyspnoea [Unknown]
  - Headache [Unknown]
  - Faeces discoloured [Unknown]
  - Influenza like illness [Unknown]
  - Ear pain [Unknown]
  - Abnormal faeces [Unknown]
  - Asthma [Unknown]

NARRATIVE: CASE EVENT DATE: 20231221
